FAERS Safety Report 10673098 (Version 1)
Quarter: 2014Q4

REPORT INFORMATION
  Report Type: Report from Study
  Country: GB (occurrence: GB)
  Receive Date: 20141224
  Receipt Date: 20141224
  Transmission Date: 20150529
  Serious: Yes (Death, Other)
  Sender: FDA-Public Use
  Company Number: GB-AMGEN-GBRNI2014099536

PATIENT
  Sex: Male
  Weight: 76 kg

DRUGS (10)
  1. ETANERCEPT [Suspect]
     Active Substance: ETANERCEPT
     Indication: PRODUCT USED FOR UNKNOWN INDICATION
     Dosage: 50 MG, QWK
     Route: 065
     Dates: start: 20100922, end: 20111207
  2. PARACETAMOL [Concomitant]
     Active Substance: ACETAMINOPHEN
     Dosage: UNK
  3. METHOTREXATE [Concomitant]
     Active Substance: METHOTREXATE
     Dosage: UNK
     Dates: start: 20101208
  4. METFORMIN [Concomitant]
     Active Substance: METFORMIN HYDROCHLORIDE
     Dosage: UNK
  5. DERMOL                             /01330701/ [Concomitant]
     Dosage: UNK
     Dates: start: 20121212, end: 20130121
  6. DERMOVATE [Concomitant]
     Active Substance: CLOBETASOL
     Dosage: UNK
     Dates: start: 20121212, end: 20130121
  7. ACITRETIN. [Concomitant]
     Active Substance: ACITRETIN
     Dosage: UNK
     Dates: start: 20121218
  8. CAPTOPRIL. [Concomitant]
     Active Substance: CAPTOPRIL
     Dosage: UNK
  9. CICLOSPORIN [Concomitant]
     Active Substance: CYCLOSPORINE
     Dosage: UNK
     Dates: start: 20130121
  10. HYDROMOL                           /00906601/ [Concomitant]
     Dosage: UNK
     Dates: start: 20121212, end: 20130121

REACTIONS (2)
  - Lung adenocarcinoma [Fatal]
  - Metastases to bone [Fatal]
